FAERS Safety Report 4667062-8 (Version None)
Quarter: 2005Q2

REPORT INFORMATION
  Report Type: 
  Country: None (occurrence: None)
  Receive Date: 20050520
  Receipt Date: 20050106
  Transmission Date: 20051028
  Serious: Yes (Other)
  Sender: FDA-Public Use
  Company Number: PHEH2005US00581

PATIENT
  Age: 70 Year
  Sex: Male

DRUGS (13)
  1. PREDNISONE TABLETS USP (NGX) [Concomitant]
     Dosage: 10 MG, QD
  2. SOTALOL HCL [Concomitant]
  3. DIGITEK [Concomitant]
     Route: 048
  4. TRIAMTERENE/HCTZ CAPSULES USP (NGX) [Concomitant]
  5. TERAZOSIN [Concomitant]
     Route: 048
  6. POTASSIUM CHLORIDE (NGX) [Concomitant]
  7. COUMADIN [Concomitant]
     Indication: PROPHYLAXIS
     Route: 048
  8. AREDIA [Suspect]
     Indication: PROSTATE CANCER METASTATIC
     Dosage: UNK MG, QMO
     Dates: start: 20010111, end: 20031003
  9. PERIDEX [Suspect]
  10. EMCYT [Concomitant]
     Dates: start: 20020927
  11. EMCYT [Concomitant]
     Dates: start: 20010511, end: 20020111
  12. TAXOTERE [Concomitant]
     Dates: start: 20010511, end: 20050111
  13. ZOMETA [Suspect]
     Indication: PROSTATE CANCER METASTATIC
     Dosage: 4 MG, QMO
     Dates: start: 20031003, end: 20041228

REACTIONS (9)
  - BONE DISORDER [None]
  - IMPAIRED HEALING [None]
  - JAW DISORDER [None]
  - OSTEOMYELITIS [None]
  - OSTEONECROSIS [None]
  - PATHOLOGICAL FRACTURE [None]
  - PRIMARY SEQUESTRUM [None]
  - TOOTH EXTRACTION [None]
  - WOUND DEBRIDEMENT [None]
